FAERS Safety Report 18381995 (Version 1)
Quarter: 2020Q4

REPORT INFORMATION
  Report Type: Spontaneous
  Country: US (occurrence: US)
  Receive Date: 20201013
  Receipt Date: 20201013
  Transmission Date: 20210114
  Serious: Yes (Hospitalization)
  Sender: FDA-Public Use
  Company Number: None

PATIENT
  Age: 75 Year
  Sex: Female

DRUGS (1)
  1. METHOTREXATE. [Suspect]
     Active Substance: METHOTREXATE

REACTIONS (4)
  - Swollen tongue [None]
  - Pancytopenia [None]
  - Acute kidney injury [None]
  - Mucosal inflammation [None]

NARRATIVE: CASE EVENT DATE: 20200930
